FAERS Safety Report 19806271 (Version 2)
Quarter: 2021Q3

REPORT INFORMATION
  Report Type: Report from Study
  Country: US (occurrence: US)
  Receive Date: 20210909
  Receipt Date: 20210916
  Transmission Date: 20211014
  Serious: Yes (Life-Threatening, Other)
  Sender: FDA-Public Use
  Company Number: US-BEH-2021135655

PATIENT
  Age: 88 Year
  Sex: Female
  Weight: 77.1 kg

DRUGS (1)
  1. HIZENTRA [Suspect]
     Active Substance: HUMAN IMMUNOGLOBULIN G
     Dosage: 16 GRAM, QW
     Route: 058

REACTIONS (10)
  - Pneumonia [Not Recovered/Not Resolved]
  - Intentional product misuse [Unknown]
  - Ear infection [Not Recovered/Not Resolved]
  - No adverse event [Unknown]
  - Urinary tract infection [Not Recovered/Not Resolved]
  - Cardiovascular symptom [Not Recovered/Not Resolved]
  - No adverse event [Unknown]
  - Kidney infection [Not Recovered/Not Resolved]
  - Cough [Not Recovered/Not Resolved]
  - Therapy interrupted [Unknown]

NARRATIVE: CASE EVENT DATE: 20210110
